FAERS Safety Report 9632938 (Version 1)
Quarter: 2013Q4

REPORT INFORMATION
  Report Type: Spontaneous
  Country: GB (occurrence: GB)
  Receive Date: 20131018
  Receipt Date: 20131018
  Transmission Date: 20140711
  Serious: Yes (Other)
  Sender: FDA-Public Use
  Company Number: PHHY2013GB113630

PATIENT
  Age: 32 Year
  Sex: Female
  Weight: 65.31 kg

DRUGS (3)
  1. CO-AMOXICLAV [Suspect]
     Indication: ANTIBIOTIC PROPHYLAXIS
     Route: 048
     Dates: start: 20130926, end: 20130927
  2. VITAMIN D3 [Concomitant]
  3. OMEGA 3 FISH OILS [Concomitant]

REACTIONS (3)
  - Vertigo [Not Recovered/Not Resolved]
  - Dizziness postural [Not Recovered/Not Resolved]
  - Headache [Not Recovered/Not Resolved]
